FAERS Safety Report 7358663-7 (Version None)
Quarter: 2011Q1

REPORT INFORMATION
  Report Type: 
  Country: None (occurrence: None)
  Receive Date: 20110317
  Receipt Date: 20110308
  Transmission Date: 20110831
  Serious: Yes (Hospitalization)
  Sender: FDA-Public Use
  Company Number: US-ASTRAZENECA-2011SE12982

PATIENT
  Age: 616 Month
  Sex: Female
  Weight: 76.2 kg

DRUGS (4)
  1. ENTOCORT EC [Suspect]
     Indication: COLITIS ULCERATIVE
     Route: 048
     Dates: start: 20101201
  2. HUMIRA [Suspect]
     Indication: COLITIS ULCERATIVE
     Route: 058
     Dates: start: 20080501
  3. SALBUTAMOL [Concomitant]
     Indication: ASTHMA
     Route: 055
  4. PREDNISONE TAB [Concomitant]
     Indication: COLITIS ULCERATIVE
     Dates: start: 20101201

REACTIONS (5)
  - PNEUMONIA [None]
  - LUNG NEOPLASM [None]
  - GASTROENTERITIS [None]
  - DRUG INEFFECTIVE [None]
  - COLITIS ULCERATIVE [None]
